FAERS Safety Report 8501224-4 (Version None)
Quarter: 2012Q3

REPORT INFORMATION
  Report Type: 
  Country: None (occurrence: None)
  Receive Date: 20120710
  Receipt Date: 20120625
  Transmission Date: 20120928
  Serious: Yes (Other)
  Sender: FDA-Public Use
  Company Number: US-WATSON-2012-11212

PATIENT
  Sex: Male
  Weight: 106.98 kg

DRUGS (3)
  1. TESTOSTERONE ENANTHATE [Suspect]
     Indication: HYPOGONADISM MALE
     Dosage: 1CC EVERY WEEK
     Route: 030
     Dates: start: 20120417, end: 20120501
  2. TESTOSTERONE ENANTHATE [Suspect]
     Dosage: 1CC EVERY 2 WEEKS
     Route: 030
     Dates: end: 20120416
  3. TESTOSTERONE ENANTHATE [Suspect]
     Dosage: 1CC EVERY 3 WEEKS
     Route: 030
     Dates: start: 20080101

REACTIONS (1)
  - PROSTATE CANCER [None]
